FAERS Safety Report 9512192 (Version 1)
Quarter: 2013Q1

REPORT INFORMATION
  Report Type: Spontaneous
  Country: US (occurrence: None)
  Receive Date: 20130305
  Receipt Date: 20130305
  Transmission Date: 20140127
  Serious: Yes (Hospitalization, Disabling)
  Sender: FDA-Public Use
  Company Number: 163-21880-11123830

PATIENT
  Age: 70 Year
  Sex: Female
  Weight: 78.93 kg

DRUGS (1)
  1. REVLIMID [Suspect]
     Indication: MYELODYSPLASTIC SYNDROME
     Dosage: 10 MG, QD, PO
     Route: 048
     Dates: start: 20111215, end: 20120103

REACTIONS (3)
  - Anaemia [None]
  - Malaise [None]
  - Chest pain [None]
